FAERS Safety Report 8417968-9 (Version None)
Quarter: 2012Q2

REPORT INFORMATION
  Report Type: 
  Country: None (occurrence: None)
  Receive Date: 20120607
  Receipt Date: 20120529
  Transmission Date: 20120825
  Serious: Yes (Other)
  Sender: FDA-Public Use
  Company Number: JP-BAYER-2012-052908

PATIENT
  Age: 41 Year
  Sex: Female
  Weight: 96 kg

DRUGS (4)
  1. LEVONORGESTREL [Suspect]
     Indication: CONTRACEPTION
     Dosage: DAILY DOSE 20 ?G
     Route: 015
     Dates: start: 20080315, end: 20111008
  2. DOGMATYL [Concomitant]
     Indication: DEPRESSION
     Route: 048
  3. ALPRAZOLAM [Concomitant]
     Indication: DEPRESSION
     Dosage: UNK
     Route: 048
  4. DIAZEPAM [Concomitant]
     Indication: DEPRESSION
     Route: 048

REACTIONS (2)
  - BREAST CANCER FEMALE [None]
  - METRORRHAGIA [None]
